FAERS Safety Report 4656566-X (Version None)
Quarter: 2005Q2

REPORT INFORMATION
  Report Type: 
  Country: None (occurrence: None)
  Receive Date: 20050331
  Receipt Date: 20041129
  Transmission Date: 20051028
  Serious: No
  Sender: FDA-Public Use
  Company Number: US100906

PATIENT
  Age: 70 Year
  Sex: Female
  Weight: 71.7 kg

DRUGS (2)
  1. NEULASTA [Suspect]
     Indication: CHEMOTHERAPY
     Dates: start: 20041115
  2. DICLOFENAC SODIUM [Concomitant]

REACTIONS (2)
  - BACK PAIN [None]
  - CHEST PAIN [None]
